FAERS Safety Report 14634542 (Version 1)
Quarter: 2018Q1

REPORT INFORMATION
  Report Type: Spontaneous
  Country: FR (occurrence: FR)
  Receive Date: 20180314
  Receipt Date: 20180314
  Transmission Date: 20180509
  Serious: Yes (Other)
  Sender: FDA-Public Use
  Company Number: FR-MERCK KGAA-2043676

PATIENT
  Age: 56 Year
  Sex: Female

DRUGS (1)
  1. NOVOTHYROX [Suspect]
     Active Substance: LEVOTHYROXINE SODIUM
     Indication: PRODUCT USED FOR UNKNOWN INDICATION

REACTIONS (26)
  - Pain in extremity [Recovered/Resolved]
  - Heart rate increased [None]
  - Gait disturbance [None]
  - Dizziness [None]
  - Asthenia [None]
  - Hypertension [None]
  - Dyspnoea [None]
  - Muscle spasms [Recovered/Resolved]
  - Fatigue [Recovered/Resolved]
  - Amnesia [None]
  - Paraesthesia [None]
  - Fear of falling [None]
  - Sleep disorder [None]
  - Presyncope [Recovered/Resolved]
  - Stress [None]
  - Middle insomnia [None]
  - Emotional distress [None]
  - Anxiety [None]
  - Loss of personal independence in daily activities [None]
  - Affective disorder [None]
  - Arthralgia [Recovered/Resolved]
  - Malaise [Recovered/Resolved]
  - Photopsia [Recovered/Resolved]
  - Depression [None]
  - Visual impairment [None]
  - Illness anxiety disorder [Recovered/Resolved]

NARRATIVE: CASE EVENT DATE: 20170512
